FAERS Safety Report 21007868 (Version 5)
Quarter: 2022Q4

REPORT INFORMATION
  Report Type: Other
  Country: AU (occurrence: AU)
  Receive Date: 20220627
  Receipt Date: 20221116
  Transmission Date: 20230112
  Serious: Yes (Hospitalization)
  Sender: FDA-Public Use
  Company Number: AU-TOLMAR, INC.-21AU031120

PATIENT
  Age: 78 Year
  Sex: Male
  Weight: 115 kg

DRUGS (6)
  1. ELIGARD [Suspect]
     Active Substance: LEUPROLIDE ACETATE
     Indication: Prostate cancer
     Dosage: UNK
     Route: 058
     Dates: start: 20170310, end: 20170824
  2. ENZALUTAMIDE [Suspect]
     Active Substance: ENZALUTAMIDE
     Indication: Prostate cancer
     Dosage: UNK
     Route: 048
     Dates: start: 20170310, end: 20171113
  3. NEXIUM [Concomitant]
     Active Substance: ESOMEPRAZOLE MAGNESIUM
     Indication: Product used for unknown indication
     Dosage: UNK
     Route: 048
     Dates: start: 2002
  4. ALGINIC ACID\ALUMINUM HYDROXIDE [Concomitant]
     Active Substance: ALGINIC ACID\ALUMINUM HYDROXIDE
     Indication: Product used for unknown indication
     Dosage: UNK
     Route: 048
     Dates: start: 2002
  5. NIZAC [Concomitant]
     Indication: Reflux gastritis
     Dosage: UNK
     Route: 048
     Dates: start: 2002
  6. LEVOTHYROXINE SODIUM [Concomitant]
     Active Substance: LEVOTHYROXINE SODIUM
     Indication: Hypothyroidism
     Dosage: UNK
     Route: 048
     Dates: start: 20180420

REACTIONS (4)
  - Bronchitis [Recovered/Resolved]
  - Bradycardia [Unknown]
  - Atrial fibrillation [Unknown]
  - Cardiac failure [Unknown]

NARRATIVE: CASE EVENT DATE: 20210519
